FAERS Safety Report 5952911-3 (Version None)
Quarter: 2008Q4

REPORT INFORMATION
  Report Type: 
  Country: None (occurrence: None)
  Receive Date: 20081114
  Receipt Date: 20081105
  Transmission Date: 20090506
  Serious: Yes (Hospitalization)
  Sender: FDA-Public Use
  Company Number: US-BAYER-200831441NA

PATIENT
  Age: 83 Year
  Sex: Male
  Weight: 67 kg

DRUGS (5)
  1. FLUDARA [Suspect]
     Indication: CHRONIC LYMPHOCYTIC LEUKAEMIA
     Dosage: TOTAL DAILY DOSE: 44 MG
     Dates: start: 20080818, end: 20080818
  2. ALLOPURINOL [Suspect]
     Indication: PROPHYLAXIS
     Dates: start: 20080801, end: 20080801
  3. RANITIDINE [Concomitant]
     Dosage: TOTAL DAILY DOSE: 300 MG
  4. LOVASTATIN [Concomitant]
     Dosage: TOTAL DAILY DOSE: 40 MG
  5. TERAZOSIN HCL [Concomitant]
     Dosage: TOTAL DAILY DOSE: 10 MG

REACTIONS (1)
  - PAIN OF SKIN [None]
